FAERS Safety Report 12370202 (Version 1)
Quarter: 2016Q2

REPORT INFORMATION
  Report Type: Spontaneous
  Country: US (occurrence: None)
  Receive Date: 20160513
  Receipt Date: 20160513
  Transmission Date: 20160815
  Serious: No
  Sender: FDA-Public Use
  Company Number: None

PATIENT
  Age: 51 Year
  Sex: Female
  Weight: 87.09 kg

DRUGS (2)
  1. TRIAMCINOLONE NASAL SPRAY, 55 MCG [Suspect]
     Active Substance: TRIAMCINOLONE ACETONIDE
     Indication: RHINITIS ALLERGIC
     Route: 045
     Dates: start: 20160401, end: 20160501
  2. OLOPATADINE NASAL SPRAY [Concomitant]

REACTIONS (1)
  - Burning sensation [None]

NARRATIVE: CASE EVENT DATE: 20160401
